FAERS Safety Report 6758722-3 (Version None)
Quarter: 2010Q2

REPORT INFORMATION
  Report Type: 
  Country: None (occurrence: None)
  Receive Date: 20100607
  Receipt Date: 20100601
  Transmission Date: 20101027
  Serious: Yes (Other)
  Sender: FDA-Public Use
  Company Number: US-MERCK-1006USA00387

PATIENT
  Age: 57 Year
  Sex: Female

DRUGS (3)
  1. FOSAMAX [Suspect]
     Indication: OSTEOPOROSIS
     Route: 048
     Dates: start: 20020101, end: 20090101
  2. SYNTHROID [Concomitant]
     Route: 065
  3. SIMVASTATIN [Concomitant]
     Route: 048

REACTIONS (2)
  - BONE DENSITY DECREASED [None]
  - SPINAL FRACTURE [None]
